FAERS Safety Report 5213806-6 (Version None)
Quarter: 2007Q1

REPORT INFORMATION
  Report Type: 
  Country: None (occurrence: None)
  Receive Date: 20070119
  Receipt Date: 20061227
  Transmission Date: 20070707
  Serious: Yes (Hospitalization, Other)
  Sender: FDA-Public Use
  Company Number: US-PFIZER INC-2006007543

PATIENT
  Sex: Female
  Weight: 85.7 kg

DRUGS (2)
  1. BEXTRA [Suspect]
     Indication: INFLAMMATION
  2. BEXTRA [Suspect]
     Indication: PAIN

REACTIONS (5)
  - CEREBROVASCULAR ACCIDENT [None]
  - DEAFNESS [None]
  - DISTURBANCE IN ATTENTION [None]
  - EYE DISORDER [None]
  - HEMIPLEGIA [None]
